FAERS Safety Report 9310782 (Version 4)
Quarter: 2013Q3

REPORT INFORMATION
  Report Type: Report from Study
  Country: IT (occurrence: IT)
  Receive Date: 20130528
  Receipt Date: 20130722
  Transmission Date: 20140515
  Serious: Yes (Hospitalization)
  Sender: FDA-Public Use
  Company Number: IT-PFIZER INC-2013161088

PATIENT
  Age: 60 Year
  Sex: Female
  Weight: 63 kg

DRUGS (5)
  1. CRIZOTINIB [Suspect]
     Indication: LUNG NEOPLASM MALIGNANT
     Dosage: 250 MG, 2X/DAY
     Route: 048
     Dates: start: 20130403, end: 20130523
  2. OMEPRAZOLE [Concomitant]
     Indication: PROPHYLAXIS
     Dosage: 20 MG, 1X/DAY
     Route: 048
     Dates: start: 20120906
  3. SOLDESAM [Concomitant]
     Indication: ANTIINFLAMMATORY THERAPY
     Dosage: 200 MG, 1X/DAY
     Route: 048
     Dates: start: 20120906
  4. FOLINGRAV [Concomitant]
     Indication: VITAMIN SUPPLEMENTATION
     Dosage: 1 DF, 1X/DAY
     Route: 048
     Dates: start: 20121005
  5. BIOTAD 600 [Concomitant]
     Indication: VITAMIN SUPPLEMENTATION
     Dosage: 600 MG, 2X/DAY
     Dates: start: 20130430

REACTIONS (2)
  - Pneumoperitoneum [Recovered/Resolved]
  - Abdominal distension [Unknown]
